FAERS Safety Report 17371574 (Version 1)
Quarter: 2020Q1

REPORT INFORMATION
  Report Type: Report from Study
  Country: IT (occurrence: IT)
  Receive Date: 20200205
  Receipt Date: 20200205
  Transmission Date: 20200409
  Serious: Yes (Other)
  Sender: FDA-Public Use
  Company Number: IT-ACCORD-171739

PATIENT
  Age: 74 Year
  Sex: Male

DRUGS (6)
  1. DOCETAXEL ACCORD [Suspect]
     Active Substance: DOCETAXEL
     Indication: NEOPLASM PROSTATE
     Dates: start: 20181024, end: 20190509
  2. ENANTONE LP [Concomitant]
     Active Substance: LEUPROLIDE ACETATE
     Dosage: STRENGTH: 3.75 MG / ML POWDER AND SOLVENT FOR SUSPENSION FOR INJECTION IN R
  3. SIMVASTATIN. [Concomitant]
     Active Substance: SIMVASTATIN
  4. LASIX [Concomitant]
     Active Substance: FUROSEMIDE
     Dosage: STRENGTH: 25 MG
  5. DELTACORTENE [Concomitant]
     Active Substance: PREDNISONE
     Dosage: STRENGTH: 25 MG
  6. CARDIOASPIRIN [Concomitant]
     Active Substance: ASPIRIN

REACTIONS (11)
  - Dry mouth [Unknown]
  - Headache [Unknown]
  - Ageusia [Unknown]
  - Onychomadesis [Unknown]
  - Paraesthesia [Unknown]
  - Nasal dryness [Unknown]
  - Dry skin [Unknown]
  - Asthenia [Unknown]
  - Neutropenia [Unknown]
  - Conjunctivitis [Unknown]
  - Diarrhoea [Unknown]

NARRATIVE: CASE EVENT DATE: 20181201
